FAERS Safety Report 12541908 (Version 2)
Quarter: 2016Q3

REPORT INFORMATION
  Report Type: Spontaneous
  Country: ES (occurrence: ES)
  Receive Date: 20160708
  Receipt Date: 20160713
  Transmission Date: 20161109
  Serious: Yes (Hospitalization, Other)
  Sender: FDA-Public Use
  Company Number: ES-TEVA-673964ISR

PATIENT
  Age: 49 Year
  Sex: Male

DRUGS (1)
  1. IBUPROFEN. [Suspect]
     Active Substance: IBUPROFEN
     Indication: BACK PAIN
     Dosage: 10 GRAM DAILY;
     Route: 048

REACTIONS (4)
  - Pulmonary alveolar haemorrhage [Recovered/Resolved]
  - Anaemia [Unknown]
  - Extra dose administered [Unknown]
  - Acute kidney injury [Recovered/Resolved]
